FAERS Safety Report 10174081 (Version 1)
Quarter: 2014Q2

REPORT INFORMATION
  Report Type: Spontaneous
  Country: US (occurrence: US)
  Receive Date: 20140515
  Receipt Date: 20140515
  Transmission Date: 20141212
  Serious: No
  Sender: FDA-Public Use
  Company Number: US-GILEAD-2014-0102438

PATIENT
  Age: 41 Year
  Sex: Female

DRUGS (16)
  1. LETAIRIS [Suspect]
     Indication: COR PULMONALE CHRONIC
     Dosage: 10 MG, QD
     Route: 065
     Dates: end: 2013
  2. ADCIRCA [Concomitant]
  3. FOSAMAX [Concomitant]
  4. PROTONIX [Concomitant]
  5. LASIX                              /00032601/ [Concomitant]
  6. SYNTHROID [Concomitant]
  7. METFORMIN [Concomitant]
  8. FOLIC ACID [Concomitant]
  9. LORAZEPAM [Concomitant]
  10. TYLENOL                            /00020001/ [Concomitant]
  11. MULTIVITAMIN                       /07504101/ [Concomitant]
  12. CLOBETASOL [Concomitant]
  13. CULTURELLE [Concomitant]
  14. FLUOCINONIDE [Concomitant]
  15. PERCOCET                           /00867901/ [Concomitant]
  16. KCL [Concomitant]

REACTIONS (1)
  - Headache [Not Recovered/Not Resolved]
